FAERS Safety Report 4368457-2 (Version None)
Quarter: 2004Q2

REPORT INFORMATION
  Report Type: 
  Country: None (occurrence: None)
  Receive Date: 20040525
  Receipt Date: 20040323
  Transmission Date: 20050107
  Serious: Yes (Hospitalization)
  Sender: FDA-Public Use
  Company Number: 2004-DE-01465GD

PATIENT
  Age: 51 Year
  Sex: Male

DRUGS (9)
  1. ISOPROTERENOL HCL [Suspect]
     Indication: PERIPHERAL NERVE NEUROSTIMULATION
     Dosage: 10 MCG
     Route: 042
  2. MEXILETINE HCL [Suspect]
     Indication: PERIPHERAL NERVE NEUROSTIMULATION
     Dosage: 450 MG (NR),PO
     Route: 048
  3. PROPRANOLOL [Suspect]
     Indication: PERIPHERAL NERVE NEUROSTIMULATION
     Dosage: 10 MG (NR)
     Route: 042
  4. EPINEPHRINE [Suspect]
     Indication: PERIPHERAL NERVE NEUROSTIMULATION
     Dosage: 50 MCG (NR)
     Route: 042
  5. PHENTOLAMINE MESYLATE [Suspect]
     Indication: PERIPHERAL NERVE NEUROSTIMULATION
     Dosage: 10 MG (NR)
     Route: 042
  6. ATROPINE [Suspect]
     Indication: PERIPHERAL NERVE NEUROSTIMULATION
     Dosage: 2 MG (NR)
     Route: 042
  7. LIDOCAINE [Suspect]
     Indication: VENTRICULAR FIBRILLATION
     Dosage: 2 MG/H (NR)
     Route: 042
  8. MAGNESIUM SULFATE [Suspect]
     Indication: VENTRICULAR FIBRILLATION
     Dosage: 0, 35 MEQ/H (NR)
     Route: 042
  9. VERAPAMIL [Suspect]
     Indication: VENTRICULAR FIBRILLATION
     Dosage: 2,5 MQ/H (NR)
     Route: 042

REACTIONS (8)
  - ANOREXIA [None]
  - AUTONOMIC NERVOUS SYSTEM IMBALANCE [None]
  - DRUG INEFFECTIVE [None]
  - ELECTROCARDIOGRAM CHANGE [None]
  - ENCEPHALOPATHY [None]
  - LOSS OF CONSCIOUSNESS [None]
  - VENTRICULAR EXTRASYSTOLES [None]
  - VENTRICULAR FIBRILLATION [None]
